FAERS Safety Report 8755764 (Version 2)
Quarter: 2012Q4

REPORT INFORMATION
  Report Type: Report from Study
  Country: ES (occurrence: ES)
  Receive Date: 20120827
  Receipt Date: 20120905
  Transmission Date: 20130627
  Serious: Yes (Hospitalization)
  Sender: FDA-Public Use
  Company Number: ES-ROCHE-1101176

PATIENT
  Age: 70 Year
  Sex: Male

DRUGS (10)
  1. AVASTIN [Suspect]
     Indication: COLORECTAL CANCER METASTATIC
     Route: 042
     Dates: start: 20120718
  2. OXALIPLATIN [Suspect]
     Indication: COLORECTAL CANCER METASTATIC
     Route: 042
     Dates: start: 20120718
  3. FOLINIC ACID [Suspect]
     Indication: COLORECTAL CANCER METASTATIC
     Route: 065
     Dates: start: 20120718
  4. FLUOROURACIL [Suspect]
     Indication: COLORECTAL CANCER METASTATIC
     Route: 042
     Dates: start: 20120718
  5. OMEPRAZOL [Concomitant]
     Route: 048
     Dates: start: 2012
  6. CO VALS FORTE [Concomitant]
     Indication: HYPERTENSION
     Route: 065
  7. ALPRAZOLAM [Concomitant]
     Indication: HYPERTENSION
     Route: 048
  8. FLUOXETINE [Concomitant]
     Route: 048
  9. VITAMIN B12 [Concomitant]
  10. MEGF0444A [Suspect]
     Indication: COLORECTAL CANCER METASTATIC
     Route: 042
     Dates: start: 20120718

REACTIONS (1)
  - Pancreatitis [Recovered/Resolved]
